FAERS Safety Report 17103837 (Version 1)
Quarter: 2019Q4

REPORT INFORMATION
  Report Type: Spontaneous
  Country: KR (occurrence: KR)
  Receive Date: 20191203
  Receipt Date: 20191203
  Transmission Date: 20200122
  Serious: No
  Sender: FDA-Public Use
  Company Number: KR-LUPIN PHARMACEUTICALS INC.-2019-03901

PATIENT
  Age: 45 Year
  Sex: Female

DRUGS (5)
  1. LOSARTAN. [Suspect]
     Active Substance: LOSARTAN
     Indication: EPIPHYSEAL DISORDER
     Dosage: 01 MILLIGRAM/KILOGRAM, QD
     Route: 065
  2. LOSARTAN. [Suspect]
     Active Substance: LOSARTAN
     Dosage: 1.5 MILLIGRAM/KILOGRAM, QD (GRADUALLY INCREASED)
     Route: 065
  3. LOSARTAN. [Suspect]
     Active Substance: LOSARTAN
     Dosage: 100 MILLIGRAM, QD
     Route: 065
  4. LOSARTAN. [Suspect]
     Active Substance: LOSARTAN
     Dosage: 02 MILLIGRAM/KILOGRAM, QD (GRADUALLY INCREASED, EVERY 3 MONTHS)
     Route: 065
  5. LOSARTAN. [Suspect]
     Active Substance: LOSARTAN
     Dosage: 25 MILLIGRAM, QD (REDUCEDAT 12 MONTHS)
     Route: 065

REACTIONS (1)
  - Dizziness [Unknown]
